FAERS Safety Report 4499131-X (Version None)
Quarter: 2004Q3

REPORT INFORMATION
  Report Type: 
  Country: None (occurrence: None)
  Receive Date: 20040927
  Receipt Date: 20040621
  Transmission Date: 20050211
  Serious: No
  Sender: FDA-Public Use
  Company Number: USA040669075

PATIENT
  Age: 12 Year
  Sex: Male
  Weight: 31 kg

DRUGS (3)
  1. STRATTERA [Suspect]
     Indication: ATTENTION DEFICIT/HYPERACTIVITY DISORDER
     Dosage: 25 MG
     Dates: start: 20030301
  2. ENALAPRIL [Concomitant]
  3. ADDERALL 10 [Concomitant]

REACTIONS (3)
  - CYANOSIS [None]
  - HEART RATE INCREASED [None]
  - NECK PAIN [None]
